FAERS Safety Report 8365927-7 (Version None)
Quarter: 2012Q2

REPORT INFORMATION
  Report Type: 
  Country: None (occurrence: None)
  Receive Date: 20120515
  Receipt Date: 20120515
  Transmission Date: 20120825
  Serious: Yes (Other)
  Sender: FDA-Public Use
  Company Number: None

PATIENT
  Age: 45 Year
  Sex: Female
  Weight: 70 kg

DRUGS (1)
  1. IMIQUIMOD [Suspect]
     Indication: NEOPLASM
     Dosage: 5MG 3 TIMES/WEEK CUTANEOUS
     Route: 003
     Dates: start: 20120510, end: 20120512

REACTIONS (1)
  - MYDRIASIS [None]
